FAERS Safety Report 9211035 (Version 1)
Quarter: 2013Q2

REPORT INFORMATION
  Report Type: Report from Study
  Country: JP (occurrence: JP)
  Receive Date: 20130404
  Receipt Date: 20130404
  Transmission Date: 20140414
  Serious: Yes (Other)
  Sender: FDA-Public Use
  Company Number: JP-GILEAD-2013-0072858

PATIENT
  Age: 69 Year
  Sex: Male

DRUGS (9)
  1. ADEFOVIR DIPIVOXIL [Suspect]
     Indication: HEPATIC CIRRHOSIS
     Dosage: 10 MG, QD
     Route: 048
     Dates: start: 20050131
  2. ZEFIX [Suspect]
     Indication: PRODUCT USED FOR UNKNOWN INDICATION
     Dosage: 100 MG, UNK
     Route: 048
     Dates: start: 20010608, end: 20020123
  3. ZEFIX [Suspect]
     Dosage: 100 MG, UNK
     Route: 048
     Dates: start: 20020705, end: 20030107
  4. ZEFIX [Suspect]
     Dosage: 100 MG, UNK
     Route: 048
     Dates: start: 20030204, end: 20040408
  5. ZEFIX [Suspect]
     Dosage: 100 MG, UNK
     Route: 048
     Dates: start: 20050131
  6. GLYCYRON 2GO [Concomitant]
     Indication: PRODUCT USED FOR UNKNOWN INDICATION
     Route: 048
  7. URSO                               /00465701/ [Concomitant]
     Indication: PRODUCT USED FOR UNKNOWN INDICATION
     Route: 048
  8. ALOSENN                            /00476901/ [Concomitant]
     Indication: PRODUCT USED FOR UNKNOWN INDICATION
     Route: 048
  9. NEO-MINOPHAGEN C [Concomitant]
     Indication: PRODUCT USED FOR UNKNOWN INDICATION
     Route: 042

REACTIONS (4)
  - Angina pectoris [Recovered/Resolved]
  - Oesophageal varices haemorrhage [Recovered/Resolved]
  - Haemoglobin decreased [Unknown]
  - Chest pain [Unknown]
